FAERS Safety Report 10447827 (Version 2)
Quarter: 2014Q3

REPORT INFORMATION
  Report Type: Report from Study
  Country: US (occurrence: US)
  Receive Date: 20140911
  Receipt Date: 20140911
  Transmission Date: 20150326
  Serious: Yes (Other)
  Sender: FDA-Public Use
  Company Number: PHEH2014US012661

PATIENT
  Age: 38 Year
  Sex: Female

DRUGS (1)
  1. EXTAVIA [Suspect]
     Active Substance: INTERFERON BETA-1B
     Indication: MULTIPLE SCLEROSIS
     Dosage: 0.25 ML, QOD (0.0625 MG)
     Route: 058
     Dates: start: 20140620

REACTIONS (6)
  - Hyperaesthesia [Recovered/Resolved]
  - Impaired healing [Recovered/Resolved]
  - Myalgia [Unknown]
  - Fatigue [Recovered/Resolved]
  - Injection site pain [Recovered/Resolved]
  - Influenza like illness [Unknown]

NARRATIVE: CASE EVENT DATE: 20140620
